FAERS Safety Report 4338033-6 (Version None)
Quarter: 2004Q2

REPORT INFORMATION
  Report Type: 
  Country: None (occurrence: None)
  Receive Date: 20040407
  Receipt Date: 20040326
  Transmission Date: 20050107
  Serious: Yes (Death)
  Sender: FDA-Public Use
  Company Number: 2004206421NO

PATIENT
  Age: 88 Year
  Sex: Male

DRUGS (5)
  1. CELEBREX [Suspect]
     Dosage: 200 MG, BID, ORAL
     Route: 048
     Dates: start: 20020101, end: 20040227
  2. PERSANTIN [Concomitant]
  3. PREDNISOLONE [Concomitant]
  4. FUROSEMIDE [Concomitant]
  5. SOTACOR [Concomitant]

REACTIONS (4)
  - ABDOMINAL PAIN [None]
  - ARRHYTHMIA [None]
  - DUODENAL ULCER [None]
  - MELAENA [None]
